FAERS Safety Report 18492956 (Version 2)
Quarter: 2020Q4

REPORT INFORMATION
  Report Type: Spontaneous
  Country: DE (occurrence: DE)
  Receive Date: 20201112
  Receipt Date: 20201124
  Transmission Date: 20210114
  Serious: No
  Sender: FDA-Public Use
  Company Number: DE-JNJFOC-20201051052

PATIENT
  Age: 74 Year
  Sex: Female

DRUGS (3)
  1. DUROGESIC SMAT [Suspect]
     Active Substance: FENTANYL
  2. DUROGESIC SMAT [Suspect]
     Active Substance: FENTANYL
  3. DUROGESIC SMAT [Suspect]
     Active Substance: FENTANYL
     Indication: PRODUCT USED FOR UNKNOWN INDICATION
     Dosage: STRENGTH: 50 G/H.
     Route: 062

REACTIONS (6)
  - Intentional product use issue [Unknown]
  - Skin exfoliation [Unknown]
  - Product adhesion issue [Unknown]
  - Off label use [Unknown]
  - Device difficult to use [Unknown]
  - Rash [Unknown]
